FAERS Safety Report 9506499 (Version 3)
Quarter: 2013Q3

REPORT INFORMATION
  Report Type: Report from Study
  Country: ES (occurrence: ES)
  Receive Date: 20130906
  Receipt Date: 20130909
  Transmission Date: 20140515
  Serious: Yes (Life-Threatening, Hospitalization, Other)
  Sender: FDA-Public Use
  Company Number: PHHO2013ES011320

PATIENT
  Age: 54 Year
  Sex: Female

DRUGS (7)
  1. AFINITOR [Suspect]
     Indication: BREAST CANCER METASTATIC
     Dosage: 10 MG, QD
     Route: 048
     Dates: start: 20130425, end: 20130824
  2. EXEMESTANE [Suspect]
     Indication: BREAST CANCER METASTATIC
     Dosage: 25 MG, QD
     Route: 048
     Dates: start: 20130425, end: 20130824
  3. CITALOPRAM [Concomitant]
     Indication: ANXIETY
     Dosage: 20 MG, QD
     Route: 048
  4. ENALAPRIL [Concomitant]
     Indication: HYPERTENSION
     Dosage: 20 MG, QD
     Route: 048
  5. LORAZEPAM [Concomitant]
     Indication: INSOMNIA
     Dosage: 1 MG, BID
     Route: 048
  6. LYRICA [Concomitant]
     Indication: PAIN
     Dosage: 150 MG, BID
     Route: 048
  7. RIVATRIL [Concomitant]
     Indication: ANXIETY
     Dosage: 2.5 MG, UNK
     Route: 048

REACTIONS (2)
  - Diarrhoea [Recovered/Resolved]
  - Hypovolaemic shock [Recovered/Resolved]
